FAERS Safety Report 15105502 (Version 1)
Quarter: 2018Q3

REPORT INFORMATION
  Report Type: Spontaneous
  Country: FR (occurrence: FR)
  Receive Date: 20180704
  Receipt Date: 20180704
  Transmission Date: 20181010
  Serious: Yes (Other)
  Sender: FDA-Public Use
  Company Number: FR-TEVA-2018-FR-920055

PATIENT
  Age: 75 Year
  Sex: Male

DRUGS (3)
  1. OFLOXACINE TEVA 200 MG [Suspect]
     Active Substance: OFLOXACIN
     Indication: URINARY TRACT INFECTION
     Dosage: 2 DOSAGE FORMS DAILY; PRESCRIBED FOR 10 DAYS
     Route: 048
     Dates: start: 20180623
  2. AVODART [Concomitant]
     Active Substance: DUTASTERIDE
  3. MECIR [Concomitant]
     Active Substance: TAMSULOSIN HYDROCHLORIDE

REACTIONS (1)
  - Arrhythmia supraventricular [Recovering/Resolving]

NARRATIVE: CASE EVENT DATE: 20180625
